FAERS Safety Report 12519242 (Version 1)
Quarter: 2016Q2

REPORT INFORMATION
  Report Type: Spontaneous
  Country: DE (occurrence: DE)
  Receive Date: 20160630
  Receipt Date: 20160630
  Transmission Date: 20160815
  Serious: Yes (Congenital Anomaly)
  Sender: FDA-Public Use
  Company Number: DE-TEVA-671476GER

PATIENT
  Age: 1 Day
  Sex: Male

DRUGS (3)
  1. VENLAFAXINE [Suspect]
     Active Substance: VENLAFAXINE HYDROCHLORIDE
     Indication: DEPRESSION
     Route: 064
     Dates: start: 20150118, end: 20151022
  2. DAS GESUNDE PLUS A-Z MAMA [Concomitant]
     Indication: PROPHYLAXIS OF NEURAL TUBE DEFECT
     Dosage: .4 MILLIGRAM DAILY;
     Route: 064
     Dates: start: 20150217, end: 20151020
  3. SEROQUEL [Suspect]
     Active Substance: QUETIAPINE FUMARATE
     Indication: DEPRESSION
     Dosage: 200 MILLIGRAM DAILY;
     Route: 064
     Dates: start: 20150118, end: 20151022

REACTIONS (2)
  - Foetal exposure during pregnancy [Unknown]
  - Penoscrotal fusion [Not Recovered/Not Resolved]

NARRATIVE: CASE EVENT DATE: 20151022
